FAERS Safety Report 25931958 (Version 1)
Quarter: 2025Q4

REPORT INFORMATION
  Report Type: Spontaneous
  Country: US (occurrence: US)
  Receive Date: 20251016
  Receipt Date: 20251016
  Transmission Date: 20260117
  Serious: Yes (Hospitalization)
  Sender: GENBIOPRO
  Company Number: US-GENBIOPRO-2025GEN00012

PATIENT
  Age: 26 Year
  Sex: Female

DRUGS (2)
  1. MISOPROSTOL [Suspect]
     Active Substance: MISOPROSTOL
     Indication: Abortion spontaneous
     Dosage: UNK
     Route: 065
  2. MIFEPRISTONE [Suspect]
     Active Substance: MIFEPRISTONE
     Indication: Abortion spontaneous
     Dosage: UNK
     Route: 065

REACTIONS (1)
  - Abnormal product of conception [Recovered/Resolved]
